FAERS Safety Report 13869491 (Version 2)
Quarter: 2017Q4

REPORT INFORMATION
  Report Type: Spontaneous
  Country: US (occurrence: US)
  Receive Date: 20170815
  Receipt Date: 20171113
  Transmission Date: 20180320
  Serious: No
  Sender: FDA-Public Use
  Company Number: US-BIOMARINAP-US-2017-114897

PATIENT
  Sex: Male
  Weight: 27.6 kg

DRUGS (1)
  1. KUVAN [Suspect]
     Active Substance: SAPROPTERIN DIHYDROCHLORIDE
     Indication: PHENYLKETONURIA
     Dosage: 500 MG, QD
     Route: 048
     Dates: start: 20170726

REACTIONS (3)
  - Nasal congestion [Recovered/Resolved]
  - Pain in extremity [Unknown]
  - Diarrhoea [Unknown]
